FAERS Safety Report 4412413-2 (Version None)
Quarter: 2004Q3

REPORT INFORMATION
  Report Type: 
  Country: None (occurrence: None)
  Receive Date: 20040727
  Receipt Date: 20040714
  Transmission Date: 20050211
  Serious: Yes (Other)
  Sender: FDA-Public Use
  Company Number: 200413477BCC

PATIENT
  Age: 9 Year
  Sex: Female
  Weight: 40.8237 kg

DRUGS (2)
  1. RID MOUSSE [Suspect]
     Indication: LICE INFESTATION
     Dosage: ONCE, TOPICALL
     Route: 061
     Dates: start: 20040702
  2. CLARITIN [Concomitant]

REACTIONS (5)
  - ANAL DISCOMFORT [None]
  - DIARRHOEA HAEMORRHAGIC [None]
  - GASTROENTERITIS VIRAL [None]
  - PYREXIA [None]
  - VAGINAL BURNING SENSATION [None]
